FAERS Safety Report 4724893-3 (Version None)
Quarter: 2005Q3

REPORT INFORMATION
  Report Type: 
  Country: None (occurrence: None)
  Receive Date: 20050726
  Receipt Date: 20050511
  Transmission Date: 20060218
  Serious: Yes (Other)
  Sender: FDA-Public Use
  Company Number: US-ROCHE-404648

PATIENT
  Age: 50 Year
  Sex: Female

DRUGS (6)
  1. PEGASYS [Suspect]
     Dosage: STRENGTH REPORTED AS 180MCG/ML.
     Route: 050
     Dates: start: 20050509
  2. COPEGUS [Suspect]
     Route: 048
     Dates: start: 20050509
  3. LITHIUM [Concomitant]
     Indication: BIPOLAR DISORDER
  4. ZOLOFT [Concomitant]
     Indication: BIPOLAR DISORDER
  5. KLONOPIN [Concomitant]
     Indication: BIPOLAR DISORDER
  6. LORTAB [Concomitant]

REACTIONS (8)
  - ANXIETY [None]
  - CHILLS [None]
  - DIARRHOEA [None]
  - HOT FLUSH [None]
  - INSOMNIA [None]
  - ROAD TRAFFIC ACCIDENT [None]
  - VISION BLURRED [None]
  - VISUAL ACUITY REDUCED [None]
